FAERS Safety Report 26065528 (Version 1)
Quarter: 2025Q4

REPORT INFORMATION
  Report Type: Spontaneous
  Country: GB (occurrence: GB)
  Receive Date: 20251119
  Receipt Date: 20251119
  Transmission Date: 20260117
  Serious: Yes (Hospitalization)
  Sender: SANOFI AVENTIS
  Company Number: None

PATIENT
  Age: 92 Year
  Sex: Male

DRUGS (28)
  1. TAMSULOSIN HYDROCHLORIDE [Suspect]
     Active Substance: TAMSULOSIN HYDROCHLORIDE
     Indication: Bladder disorder
     Dosage: 400 UG, QD
     Route: 065
  2. SOLIFENACIN SUCCINATE;TAMSULOSIN HYDROCHLORIDE [Concomitant]
     Indication: Product used for unknown indication
     Dosage: UNK
     Route: 065
  3. FUROSEMIDE\TRIAMTERENE [Concomitant]
     Active Substance: FUROSEMIDE\TRIAMTERENE
     Indication: Product used for unknown indication
     Dosage: UNK
     Route: 065
  4. MIDAZOLAM [Concomitant]
     Active Substance: MIDAZOLAM
     Indication: Product used for unknown indication
     Dosage: UNK (10 MG / 2 ML SOLUTION FOR INJECTION AMPOULES 10-30 MG OVER 24 HOURS AS DIRECTED)
     Route: 065
  5. FUROSEMIDE\SPIRONOLACTONE [Concomitant]
     Active Substance: FUROSEMIDE\SPIRONOLACTONE
     Indication: Product used for unknown indication
     Dosage: UNK
     Route: 065
  6. OMEPRAZOLE [Concomitant]
     Active Substance: OMEPRAZOLE
     Indication: Product used for unknown indication
     Dosage: 10 MG, QD (10 MG GASTRO-RESISTANT CAPSULESONE TO BE TAKEN EACH DAY)
     Route: 065
  7. FUROSEMIDE [Concomitant]
     Active Substance: FUROSEMIDE
     Indication: Product used for unknown indication
     Dosage: 40 MG, QD (ONE TO BE TAKEN EACH MORNING)
     Route: 065
  8. PAMIDRONATE DISODIUM [Concomitant]
     Active Substance: PAMIDRONATE DISODIUM
     Indication: Product used for unknown indication
     Dosage: UNK
     Route: 065
  9. PHENOBARBITAL SODIUM [Concomitant]
     Active Substance: PHENOBARBITAL SODIUM
     Indication: Product used for unknown indication
     Dosage: UNK
     Route: 065
  10. FUROSEMIDE [Concomitant]
     Active Substance: FUROSEMIDE
     Indication: Product used for unknown indication
     Dosage: 1 DF, QD (ONE TO BE TAKEN EACH MORNING)
     Route: 065
  11. CARBOMER [Concomitant]
     Active Substance: CARBOMER
     Indication: Dry eye
     Dosage: 1 DROP, QID (APPLY ONE DROP FOUR TIMES A DAY TO BOTH EYES WHEN REQUIRED FOR DRY EYES)
     Route: 065
  12. PHENYTOIN SODIUM [Concomitant]
     Active Substance: PHENYTOIN SODIUM
     Indication: Product used for unknown indication
     Dosage: UNK
     Route: 065
  13. OXYCODONE [Concomitant]
     Active Substance: OXYCODONE
     Indication: Pain
     Dosage: UNK (10 MG / 1 ML SOLUTION FOR INJECTION AMPOULES 1.5-2.5 MGSUBCUTANEOUSLY WHEN REQUIRED FOR PAIN)
     Route: 058
  14. LEVOMEPROMAZINE [Concomitant]
     Active Substance: LEVOMEPROMAZINE
     Indication: Product used for unknown indication
     Dosage: UNK (25 MG / 1 ML SOLUTION FOR INJECTION AMPOULES 6.25-25 MG OVER 24 HOURS AS DIRECTED)
     Route: 065
  15. ETIDRONATE DISODIUM [Concomitant]
     Active Substance: ETIDRONATE DISODIUM
     Indication: Product used for unknown indication
     Dosage: UNK
     Route: 065
  16. Amiloride;Furosemide [Concomitant]
     Indication: Product used for unknown indication
     Dosage: UNK
     Route: 065
  17. CALCIUM CARBONATE\CHOLECALCIFEROL [Concomitant]
     Active Substance: CALCIUM CARBONATE\CHOLECALCIFEROL
     Indication: Product used for unknown indication
     Dosage: 1 DF (1500 MG / 400 UNITONE TABLET TO BE TAKEN TWICE A DAY IN THE MORNING AND AT NIGHT)
     Route: 065
  18. TRELEGY ELLIPTA [Concomitant]
     Active Substance: FLUTICASONE FUROATE\UMECLIDINIUM BROMIDE\VILANTEROL TRIFENATATE
     Indication: Product used for unknown indication
     Dosage: UNK, QD (92 / 55 / 22 MICROGRAMS / DOSE DRY POWDER INHALERDRY POWDER INHALER ONE INHALATION DAILY)
     Route: 065
  19. SCOPOLAMINE HYDROBROMIDE [Concomitant]
     Active Substance: SCOPOLAMINE HYDROBROMIDE
     Indication: Product used for unknown indication
     Dosage: UNK (400 MICROGRAMS / 1 ML SOLUTION FOR INJECTION AMPOULES 1200-2400MCG OVER 24 HOURS)
     Route: 065
  20. SENNA [Concomitant]
     Active Substance: SENNOSIDES
     Indication: Product used for unknown indication
     Dosage: 7.5 MG, BID (7.5 MG TABLETS TWO TO BE TAKEN AT NIGHT)
     Route: 065
  21. GADOFOSVESET TRISODIUM [Concomitant]
     Active Substance: GADOFOSVESET TRISODIUM
     Indication: Product used for unknown indication
     Dosage: UNK
     Route: 065
  22. DICLOFENAC SODIUM [Concomitant]
     Active Substance: DICLOFENAC SODIUM
     Indication: Product used for unknown indication
     Dosage: UNK
     Route: 065
  23. ALFENTANIL [Concomitant]
     Active Substance: ALFENTANIL
     Indication: Product used for unknown indication
     Dosage: 1 MG, QD (1 MG / 2 ML SOLUTION FOR INJECTION AMPOULES 1 MG OVER 24 HOURS)
     Route: 065
  24. Cetraben [Concomitant]
     Indication: Product used for unknown indication
     Dosage: UNK UNK, BID (APPLY TWICE A DAY TO LEGS AND FEET)
     Route: 065
  25. SODIUM CHLORIDE [Concomitant]
     Active Substance: SODIUM CHLORIDE
     Indication: Product used for unknown indication
     Dosage: 10 ML (0.9% SOLUTION FOR INJECTION 10 ML AMPOULES TO BE USED AS DIRECTED)
     Route: 065
  26. RISEDRONATE SODIUM [Concomitant]
     Active Substance: RISEDRONATE SODIUM
     Indication: Product used for unknown indication
     Dosage: UNK
     Route: 065
  27. DERMOL [Concomitant]
     Active Substance: BENZALKONIUM CHLORIDE\CHLORHEXIDINE HYDROCHLORIDE\ISOPROPYL MYRISTATE\PARAFFIN
     Indication: Product used for unknown indication
     Dosage: UNK (LOTIONAPPLY TO SKIN OR USE AS A SOAP SUBSTITUTE)
     Route: 065
  28. PENTOSAN POLYSULFATE SODIUM [Concomitant]
     Active Substance: PENTOSAN POLYSULFATE SODIUM
     Indication: Product used for unknown indication
     Dosage: UNK
     Route: 065

REACTIONS (2)
  - Fall [Recovered/Resolved]
  - Dizziness [Unknown]
